FAERS Safety Report 15775377 (Version 4)
Quarter: 2019Q2

REPORT INFORMATION
  Report Type: Spontaneous
  Country: US (occurrence: US)
  Receive Date: 20181231
  Receipt Date: 20190618
  Transmission Date: 20190711
  Serious: Yes (Other)
  Sender: FDA-Public Use
  Company Number: US-BIOGEN-2018BI00677425

PATIENT
  Sex: Female

DRUGS (1)
  1. TYSABRI [Suspect]
     Active Substance: NATALIZUMAB
     Indication: MULTIPLE SCLEROSIS
     Dosage: INFUSED OVER ONE HOUR
     Route: 042
     Dates: start: 20180802

REACTIONS (5)
  - Seizure [Not Recovered/Not Resolved]
  - Stress [Unknown]
  - Multiple sclerosis relapse [Not Recovered/Not Resolved]
  - Confusional state [Not Recovered/Not Resolved]
  - Obsessive-compulsive disorder [Unknown]
